FAERS Safety Report 7627770-3 (Version None)
Quarter: 2011Q3

REPORT INFORMATION
  Report Type: 
  Country: None (occurrence: None)
  Receive Date: 20110721
  Receipt Date: 20110712
  Transmission Date: 20111222
  Serious: Yes (Other)
  Sender: FDA-Public Use
  Company Number: PHHY2011SK62853

PATIENT
  Sex: Male

DRUGS (2)
  1. ZOMETA [Suspect]
     Indication: METASTATIC RENAL CELL CARCINOMA
     Dosage: 04 MG PER DAY
     Route: 042
     Dates: start: 20100101
  2. AFINITOR [Suspect]
     Indication: METASTATIC RENAL CELL CARCINOMA
     Dosage: 10 MG PER  DAY
     Route: 048
     Dates: start: 20110209, end: 20110701

REACTIONS (1)
  - PNEUMONITIS [None]
